FAERS Safety Report 9002367 (Version 4)
Quarter: 2013Q1

REPORT INFORMATION
  Report Type: Spontaneous
  Country: BR (occurrence: BR)
  Receive Date: 20130107
  Receipt Date: 20130301
  Transmission Date: 20140127
  Serious: Yes (Death)
  Sender: FDA-Public Use
  Company Number: US-PFIZER INC-2013001259

PATIENT
  Age: 74 Year
  Sex: Male

DRUGS (1)
  1. XALKORI [Suspect]
     Indication: LUNG CANCER METASTATIC
     Dosage: 250 MG, 2X/DAY (CONTINUOUS USE)
     Dates: start: 20120309

REACTIONS (2)
  - Disease progression [Fatal]
  - Lung cancer metastatic [Fatal]
